FAERS Safety Report 12623036 (Version 1)
Quarter: 2016Q3

REPORT INFORMATION
  Report Type: Spontaneous
  Country: US (occurrence: US)
  Receive Date: 20160804
  Receipt Date: 20160804
  Transmission Date: 20161109
  Serious: No
  Sender: FDA-Public Use
  Company Number: US-ASTRAZENECA-2016SE80885

PATIENT
  Sex: Female

DRUGS (2)
  1. BYDUREON [Suspect]
     Active Substance: EXENATIDE
     Route: 058
     Dates: end: 201605
  2. VICTOZA [Concomitant]
     Active Substance: LIRAGLUTIDE

REACTIONS (3)
  - Pruritus [Unknown]
  - Injection site erythema [Unknown]
  - Injection site mass [Unknown]
